FAERS Safety Report 25067890 (Version 3)
Quarter: 2025Q3

REPORT INFORMATION
  Report Type: Report from Study
  Country: US (occurrence: US)
  Receive Date: 20250312
  Receipt Date: 20250809
  Transmission Date: 20251021
  Serious: Yes (Other)
  Sender: ALEXION PHARMACEUTICALS
  Company Number: 202502USA022462US

PATIENT
  Sex: Male

DRUGS (2)
  1. OLAPARIB [Suspect]
     Active Substance: OLAPARIB
     Indication: Pancreatic carcinoma
     Dosage: 300 MILLIGRAM, BID
     Dates: start: 202502
  2. OLAPARIB [Suspect]
     Active Substance: OLAPARIB
     Dosage: 150 MILLIGRAM, BID
     Dates: start: 202503

REACTIONS (6)
  - Tumour marker increased [Unknown]
  - Pulmonary congestion [Unknown]
  - Headache [Recovered/Resolved]
  - Platelet count decreased [Unknown]
  - Rhinorrhoea [Unknown]
  - Joint swelling [Unknown]
